FAERS Safety Report 19123698 (Version 1)
Quarter: 2021Q2

REPORT INFORMATION
  Report Type: Spontaneous
  Country: JP (occurrence: JP)
  Receive Date: 20210412
  Receipt Date: 20210412
  Transmission Date: 20210717
  Serious: Yes (Other)
  Sender: FDA-Public Use
  Company Number: JP-OXFORD PHARMACEUTICALS, LLC-2109205

PATIENT
  Age: 50 Year
  Sex: Male

DRUGS (1)
  1. DIPYRIDAMOLE. [Suspect]
     Active Substance: DIPYRIDAMOLE

REACTIONS (1)
  - Myocardial ischaemia [Recovered/Resolved]
